FAERS Safety Report 12490837 (Version 2)
Quarter: 2016Q3

REPORT INFORMATION
  Report Type: Spontaneous
  Country: DK (occurrence: DK)
  Receive Date: 20160623
  Receipt Date: 20160811
  Transmission Date: 20161109
  Serious: Yes (Hospitalization)
  Sender: FDA-Public Use
  Company Number: DK-ASTRAZENECA-2016SE65449

PATIENT
  Age: 19598 Day
  Sex: Female
  Weight: 56 kg

DRUGS (3)
  1. CLORIOCARD [Concomitant]
     Indication: THROMBOSIS PROPHYLAXIS
  2. ANCOZAN [Concomitant]
     Active Substance: LOSARTAN POTASSIUM
  3. CRESTOR [Suspect]
     Active Substance: ROSUVASTATIN CALCIUM
     Indication: HYPERCHOLESTEROLAEMIA
     Route: 048
     Dates: start: 20101215, end: 20160429

REACTIONS (5)
  - Cupulolithiasis [Unknown]
  - Dizziness [Recovered/Resolved]
  - Nausea [Recovered/Resolved]
  - Thrombosis [Unknown]
  - Insomnia [Not Recovered/Not Resolved]

NARRATIVE: CASE EVENT DATE: 20101220
